FAERS Safety Report 21076784 (Version 1)
Quarter: 2022Q3

REPORT INFORMATION
  Report Type: Report from Study
  Country: CN (occurrence: CN)
  Receive Date: 20220713
  Receipt Date: 20220713
  Transmission Date: 20221027
  Serious: Yes (Other)
  Sender: FDA-Public Use
  Company Number: CN-JNJFOC-20220712570

PATIENT

DRUGS (1)
  1. BORTEZOMIB [Suspect]
     Active Substance: BORTEZOMIB
     Indication: Plasma cell myeloma
     Dosage: UNK
     Route: 058

REACTIONS (9)
  - Gastrointestinal disorder [Unknown]
  - Cardiotoxicity [Unknown]
  - Thrombosis [Unknown]
  - Neuropathy peripheral [Unknown]
  - Pneumonia [Unknown]
  - Platelet count decreased [Unknown]
  - Neutrophil count decreased [Unknown]
  - Herpes zoster [Unknown]
  - Rash [Unknown]
